FAERS Safety Report 8270302-X (Version None)
Quarter: 2012Q2

REPORT INFORMATION
  Report Type: 
  Country: None (occurrence: None)
  Receive Date: 20120405
  Receipt Date: 20120327
  Transmission Date: 20120825
  Serious: Yes (Hospitalization)
  Sender: FDA-Public Use
  Company Number: 1244225

PATIENT
  Age: 69 Year
  Sex: Male

DRUGS (9)
  1. ALOXI [Concomitant]
  2. METFORMIN HCL [Concomitant]
  3. ZANTAC [Concomitant]
  4. DECADRON [Concomitant]
  5. DOCETAXEL [Suspect]
     Indication: CHEMOTHERAPY
     Dosage: 130 MG MILLIGRAM(S), , INTRAVENOUS
     Route: 042
     Dates: start: 20120111, end: 20120222
  6. FLUORURACIL TEVA [Concomitant]
  7. CISPLATIN [Concomitant]
  8. ATENOLOL [Concomitant]
  9. TRIMETON [Concomitant]

REACTIONS (5)
  - ORAL PAIN [None]
  - DYSPHAGIA [None]
  - STOMATITIS [None]
  - APHAGIA [None]
  - ORAL CANDIDIASIS [None]
